FAERS Safety Report 9393492 (Version 1)
Quarter: 2013Q3

REPORT INFORMATION
  Report Type: Spontaneous
  Country: US (occurrence: US)
  Receive Date: 20130710
  Receipt Date: 20130710
  Transmission Date: 20140515
  Serious: Yes (Other)
  Sender: FDA-Public Use
  Company Number: US-TEVA-417742USA

PATIENT
  Age: 66 Year
  Sex: Female
  Weight: 72.64 kg

DRUGS (4)
  1. FLUCONAZOLE [Suspect]
     Indication: FUNGAL INFECTION
     Dosage: 100 MILLIGRAM DAILY; FOR 7 DAYS
     Dates: start: 201304
  2. FLUCONAZOLE [Suspect]
     Dosage: 100 MILLIGRAM DAILY;
     Dates: start: 20130603, end: 20130610
  3. METOPROLOL [Concomitant]
     Indication: CARDIAC DISORDER
     Dosage: 50 MILLIGRAM DAILY;
  4. METFORMIN [Concomitant]
     Indication: DIABETES MELLITUS
     Dosage: 500 MILLIGRAM DAILY;

REACTIONS (4)
  - Infection [Unknown]
  - Dysuria [Unknown]
  - Drug ineffective [Unknown]
  - Urethritis noninfective [Not Recovered/Not Resolved]
